FAERS Safety Report 14559815 (Version 1)
Quarter: 2018Q1

REPORT INFORMATION
  Report Type: Spontaneous
  Country: US (occurrence: US)
  Receive Date: 20180220
  Receipt Date: 20180220
  Transmission Date: 20180509
  Serious: Yes (Death)
  Sender: FDA-Public Use
  Company Number: None

PATIENT
  Age: 91 Year
  Sex: Male

DRUGS (12)
  1. PROLIA [Suspect]
     Active Substance: DENOSUMAB
     Indication: PRODUCT USED FOR UNKNOWN INDICATION
     Dosage: ?          OTHER FREQUENCY:EVERY 6 MONTHS;?
  2. CLOPIDOGREL [Concomitant]
     Active Substance: CLOPIDOGREL BISULFATE
  3. CARBIDOPA/LEVODOPA [Concomitant]
     Active Substance: CARBIDOPA\LEVODOPA
  4. MONTELUKAST SODIUM. [Concomitant]
     Active Substance: MONTELUKAST SODIUM
  5. DIGOXIN. [Concomitant]
     Active Substance: DIGOXIN
  6. RANEXA [Concomitant]
     Active Substance: RANOLAZINE
  7. GLMEPRIDE [Concomitant]
  8. FUROSEMIDE. [Concomitant]
     Active Substance: FUROSEMIDE
  9. CARVEDILOL. [Concomitant]
     Active Substance: CARVEDILOL
  10. OMEGA 3 [Concomitant]
     Active Substance: OMEGA-3 FATTY ACIDS
  11. SINEMET [Concomitant]
     Active Substance: CARBIDOPA\LEVODOPA
  12. EQ ALLERGY RELIEF [Concomitant]

REACTIONS (1)
  - Death [None]
